FAERS Safety Report 9620666 (Version 4)
Quarter: 2014Q1

REPORT INFORMATION
  Report Type: Spontaneous
  Country: CA (occurrence: CA)
  Receive Date: 20131015
  Receipt Date: 20140207
  Transmission Date: 20141002
  Serious: Yes (Other)
  Sender: FDA-Public Use
  Company Number: CA-ROCHE-1288755

PATIENT
  Age: 69 Year
  Sex: Male

DRUGS (3)
  1. XOLAIR [Suspect]
     Indication: ASTHMA
     Route: 058
     Dates: start: 20130718
  2. XOLAIR [Suspect]
     Route: 058
     Dates: start: 20131107
  3. XOLAIR [Suspect]
     Route: 058
     Dates: start: 20140123, end: 20140123

REACTIONS (7)
  - Pneumonia [Unknown]
  - Fatigue [Unknown]
  - Nasopharyngitis [Unknown]
  - Cough [Not Recovered/Not Resolved]
  - Pyrexia [Recovered/Resolved]
  - Wheezing [Recovering/Resolving]
  - Asthma [Unknown]
